FAERS Safety Report 25828501 (Version 1)
Quarter: 2025Q3

REPORT INFORMATION
  Report Type: Report from Study
  Country: US (occurrence: US)
  Receive Date: 20250922
  Receipt Date: 20250922
  Transmission Date: 20251020
  Serious: Yes (Other)
  Sender: ABBVIE
  Company Number: US-ABBVIE-6468484

PATIENT
  Age: 69 Year
  Sex: Female

DRUGS (1)
  1. LINZESS [Suspect]
     Active Substance: LINACLOTIDE
     Indication: Product used for unknown indication
     Route: 048
     Dates: start: 2023

REACTIONS (6)
  - Large intestine perforation [Not Recovered/Not Resolved]
  - Back pain [Unknown]
  - Compression fracture [Unknown]
  - Gastrointestinal disorder [Unknown]
  - Urinary bladder suspension [Not Recovered/Not Resolved]
  - Diverticulitis [Unknown]

NARRATIVE: CASE EVENT DATE: 20250801
